FAERS Safety Report 23270472 (Version 1)
Quarter: 2023Q4

REPORT INFORMATION
  Report Type: Spontaneous
  Country: IT (occurrence: IT)
  Receive Date: 20231207
  Receipt Date: 20231207
  Transmission Date: 20240110
  Serious: Yes (Life-Threatening, Hospitalization, Other)
  Sender: FDA-Public Use
  Company Number: IT-CELGENE-ITA-20211104152

PATIENT
  Age: 63 Year
  Sex: Male

DRUGS (30)
  1. LENALIDOMIDE [Suspect]
     Active Substance: LENALIDOMIDE
     Indication: Plasma cell myeloma
     Dosage: 25 MILLIGRAM (FREQUENCY TEXT: NOT PROVIDED)
     Route: 048
     Dates: start: 20211115
  2. LENALIDOMIDE [Suspect]
     Active Substance: LENALIDOMIDE
     Dosage: 25 MILLIGRAM (FREQUENCY TEXT: NOT PROVIDED)
     Route: 048
     Dates: start: 20211025, end: 20211106
  3. DEXAMETHASONE [Suspect]
     Active Substance: DEXAMETHASONE
     Indication: Plasma cell myeloma
     Dosage: 40 MILLIGRAM (FREQUENCY TEXT: NOT PROVIDED)
     Route: 065
     Dates: start: 20211025, end: 20211102
  4. DEXAMETHASONE [Suspect]
     Active Substance: DEXAMETHASONE
     Dosage: 20 MILLIGRAM (FREQUENCY TEXT: NOT PROVIDED)
     Route: 065
     Dates: start: 20211115
  5. CARFILZOMIB [Suspect]
     Active Substance: CARFILZOMIB
     Indication: Plasma cell myeloma
     Dosage: 105 MILLIGRAM (FREQUENCY TEXT: NOT PROIVDED)
     Route: 042
     Dates: start: 20211115
  6. CARFILZOMIB [Suspect]
     Active Substance: CARFILZOMIB
     Dosage: (FREQUENCY TEXT: NOT PROIVDED )
     Route: 042
     Dates: start: 20211025, end: 20211102
  7. CARFILZOMIB [Suspect]
     Active Substance: CARFILZOMIB
     Dosage: 38 MILLIGRAM
     Route: 042
     Dates: start: 20211025, end: 20211025
  8. CARFILZOMIB [Suspect]
     Active Substance: CARFILZOMIB
     Dosage: 105 MILLIGRAM
     Route: 042
     Dates: start: 20211102, end: 20211102
  9. ISATUXIMAB [Suspect]
     Active Substance: ISATUXIMAB
     Indication: Plasma cell myeloma
     Dosage: 790 MILLIGRAM (FREQUENCY TEXT: NOT PROVIDED)
     Route: 042
     Dates: start: 20211115
  10. ISATUXIMAB [Suspect]
     Active Substance: ISATUXIMAB
     Dosage: 790 MILLIGRAM (FREQUENCY TEXT: NOT PROVIDED)`
     Route: 042
     Dates: start: 20211025, end: 20211102
  11. ALLOPURINOL [Concomitant]
     Active Substance: ALLOPURINOL
     Indication: Neutropenia
     Dosage: UNK (FREQUENCY TEXT: NOT PROVIDED)
     Route: 065
     Dates: start: 20210928
  12. COTRIMOXAZOLE [Concomitant]
     Active Substance: SULFAMETHOXAZOLE\TRIMETHOPRIM
     Indication: Prophylaxis
     Dosage: UNK (FREQUENCY TEXT: NOT PROIVDED)
     Route: 065
     Dates: start: 20211115
  13. COTRIMOXAZOLE [Concomitant]
     Active Substance: SULFAMETHOXAZOLE\TRIMETHOPRIM
     Dosage: UNK (FREQUENCY TEXT: NOT PROIVDED)
     Route: 065
     Dates: start: 20211024
  14. COTRIMOXAZOLE [Concomitant]
     Active Substance: SULFAMETHOXAZOLE\TRIMETHOPRIM
     Dosage: UNK
     Route: 065
     Dates: start: 20220704
  15. ENOXAPARIN [Concomitant]
     Active Substance: ENOXAPARIN
     Indication: Prophylaxis
     Dosage: UNK (FREQUENCY TEXT: NOT PROVIDED)
     Route: 065
     Dates: start: 20211024, end: 20220217
  16. ENOXAPARIN [Concomitant]
     Active Substance: ENOXAPARIN
     Dosage: UNK (FREQUENCY TEXT: NOT PROVIDED)
     Route: 065
     Dates: start: 20211115
  17. FLUCONAZOLE [Concomitant]
     Active Substance: FLUCONAZOLE
     Indication: Prophylaxis
     Dosage: UNK (FREQUENCY TEXT: NOT PROVIDED)
     Route: 065
     Dates: start: 20211110
  18. LANSOPRAZOLE [Concomitant]
     Active Substance: LANSOPRAZOLE
     Indication: Prophylaxis
     Dosage: UNK (FREQUENCY TEXT: NOT PROVIDED)
     Route: 065
     Dates: start: 20211024
  19. LANSOPRAZOLE [Concomitant]
     Active Substance: LANSOPRAZOLE
     Dosage: UNK (FREQUENCY TEXT: NOT PROVIDED)
     Route: 065
     Dates: start: 20211115
  20. PREDNISONE [Concomitant]
     Active Substance: PREDNISONE
     Indication: Eosinophilia
     Dosage: UNK (FREQUENCY TEXT: NOT PROVIDED)
     Route: 065
     Dates: start: 20211111, end: 20211115
  21. RETACRIT [Concomitant]
     Active Substance: EPOETIN ALFA-EPBX
     Indication: Anaemia
     Dosage: UNK (FREQUENCY TEXT: NOT PROVIDEDFREQUENCY TEXT: NOT PROVIDED)
     Route: 065
     Dates: start: 20211029, end: 20211119
  22. RASBURICASE [Concomitant]
     Active Substance: RASBURICASE
     Indication: Prophylaxis
     Dosage: UNK (FREQUENCY TEXT: NOT PROVIDED)
     Route: 065
     Dates: start: 20211025
  23. VALACYCLOVIR HYDROCHLORIDE [Concomitant]
     Active Substance: VALACYCLOVIR HYDROCHLORIDE
     Indication: Prophylaxis
     Dosage: UNK (FREQUENCY TEXT: NOT PROVIDED)
     Route: 065
     Dates: start: 20211115
  24. VALACYCLOVIR HYDROCHLORIDE [Concomitant]
     Active Substance: VALACYCLOVIR HYDROCHLORIDE
     Dosage: UNK (FREQUENCY TEXT: NOT PROVIDED)
     Route: 065
     Dates: start: 20211024
  25. ASPIRIN [Concomitant]
     Active Substance: ASPIRIN
     Indication: Prophylaxis
     Dosage: UNK
     Route: 065
     Dates: start: 20220704
  26. LEVOFLOXACIN [Concomitant]
     Active Substance: LEVOFLOXACIN
     Indication: Prophylaxis
     Dosage: UNK
     Route: 065
     Dates: start: 20220430
  27. ONDANSETRON [Concomitant]
     Active Substance: ONDANSETRON
     Indication: Prophylaxis
     Dosage: UNK
     Route: 065
     Dates: start: 20220314
  28. FOSAPREPITANT [Concomitant]
     Active Substance: FOSAPREPITANT
     Indication: Prophylaxis
     Dosage: UNK
     Route: 065
     Dates: start: 20220427, end: 20220427
  29. ACETAMINOPHEN [Concomitant]
     Active Substance: ACETAMINOPHEN
     Indication: Product used for unknown indication
     Dosage: UNK, PREMEDICATION FOR ISATUXIMAB
     Route: 065
     Dates: start: 20211025
  30. DIPHENHYDRAMINE [Concomitant]
     Active Substance: DIPHENHYDRAMINE
     Indication: Product used for unknown indication
     Dosage: UNK,PREMEDICATION TO ISATUXIMAB
     Route: 065
     Dates: start: 20211025

REACTIONS (10)
  - Febrile neutropenia [Recovered/Resolved]
  - Fluid retention [Unknown]
  - Mucosal inflammation [Unknown]
  - Thrombocytopenia [Unknown]
  - Neutropenia [Unknown]
  - Hypokalaemia [Unknown]
  - Anaemia [Unknown]
  - Infusion related reaction [Unknown]
  - Labile hypertension [Unknown]
  - COVID-19 [Unknown]

NARRATIVE: CASE EVENT DATE: 20211107
